FAERS Safety Report 20940759 (Version 2)
Quarter: 2022Q3

REPORT INFORMATION
  Report Type: Spontaneous
  Country: DE (occurrence: DE)
  Receive Date: 20220609
  Receipt Date: 20220628
  Transmission Date: 20221027
  Serious: Yes (Death, Other)
  Sender: FDA-Public Use
  Company Number: DE-NOVARTISPH-NVSC2022DE133180

PATIENT
  Sex: Female
  Weight: 8.4 kg

DRUGS (3)
  1. ZOLGENSMA [Suspect]
     Active Substance: ONASEMNOGENE ABEPARVOVEC-XIOI
     Indication: Muscle atrophy
     Dosage: UNK (9.4 X 1014 VECTOR GENOMES (VG) / 1 HOUR)
     Route: 042
     Dates: start: 20220302, end: 20220302
  2. PREDNISOLONE [Concomitant]
     Active Substance: PREDNISOLONE
     Indication: Product used for unknown indication
     Dosage: 8 MG
     Route: 048
     Dates: start: 20220301
  3. NEXIUM [Concomitant]
     Active Substance: ESOMEPRAZOLE MAGNESIUM
     Indication: Product used for unknown indication
     Dosage: 8 MG
     Route: 048

REACTIONS (4)
  - Aspiration [Fatal]
  - Pneumonia [Fatal]
  - Respiratory failure [Unknown]
  - COVID-19 [Unknown]

NARRATIVE: CASE EVENT DATE: 20220501
